FAERS Safety Report 5083918-9 (Version None)
Quarter: 2006Q3

REPORT INFORMATION
  Report Type: 
  Country: None (occurrence: None)
  Receive Date: 20060727
  Receipt Date: 20060412
  Transmission Date: 20061208
  Serious: Yes (Other)
  Sender: FDA-Public Use
  Company Number: 2006050829

PATIENT
  Age: 77 Year
  Sex: Male
  Weight: 71.6683 kg

DRUGS (10)
  1. LYRICA [Suspect]
     Indication: NEURALGIA
     Dosage: 600 MG (2 IN 1 D), ORAL
     Route: 048
     Dates: start: 20060301
  2. SIMVASTATIN [Concomitant]
  3. GEMFIBROZIL (GEMBIFROZIL) [Concomitant]
  4. DIGOXIN [Concomitant]
  5. METOPROLOL (METOPROLOL) [Concomitant]
  6. LISINOPRIL [Concomitant]
  7. CLOPIDOGREL [Concomitant]
  8. FELODIPINE [Concomitant]
  9. ALPRAZOLAM [Concomitant]
  10. DOXAZOSIN (DOXAZOSIN) [Concomitant]

REACTIONS (8)
  - DIZZINESS [None]
  - DYSPHONIA [None]
  - HERPES ZOSTER [None]
  - INFLUENZA LIKE ILLNESS [None]
  - MEMORY IMPAIRMENT [None]
  - NASAL ULCER [None]
  - PAIN [None]
  - SKIN SWELLING [None]
